FAERS Safety Report 9415841 (Version 2)
Quarter: 2013Q3

REPORT INFORMATION
  Report Type: Spontaneous
  Country: BR (occurrence: BR)
  Receive Date: 20130724
  Receipt Date: 20130921
  Transmission Date: 20140515
  Serious: Yes (Other)
  Sender: FDA-Public Use
  Company Number: BR-ROCHE-1242499

PATIENT
  Age: 38 Year
  Sex: Female
  Weight: 75 kg

DRUGS (3)
  1. HERCEPTIN [Suspect]
     Indication: NEOPLASM MALIGNANT
     Route: 042
     Dates: start: 20130529, end: 20130529
  2. ZOLADEX [Concomitant]
  3. TYKERB [Concomitant]

REACTIONS (6)
  - Nervous system disorder [Recovering/Resolving]
  - Hypertension [Recovered/Resolved]
  - Tachycardia [Recovered/Resolved]
  - Convulsion [Not Recovered/Not Resolved]
  - Malaise [Recovering/Resolving]
  - Peripheral coldness [Recovering/Resolving]
